FAERS Safety Report 20980160 (Version 1)
Quarter: 2022Q2

REPORT INFORMATION
  Report Type: Spontaneous
  Country: IT (occurrence: IT)
  Receive Date: 20220620
  Receipt Date: 20220620
  Transmission Date: 20220721
  Serious: Yes (Death, Other)
  Sender: FDA-Public Use
  Company Number: IT-RANBAXY-2015R1-92331

PATIENT
  Age: 33 Year
  Sex: Female

DRUGS (6)
  1. CAPECITABINE [Suspect]
     Active Substance: CAPECITABINE
     Indication: Metastatic neoplasm
     Dosage: 2000 MILLIGRAM/SQ. METER, DAILY
     Route: 065
     Dates: start: 20091216, end: 20100303
  2. CISPLATIN [Suspect]
     Active Substance: CISPLATIN
     Indication: Metastatic neoplasm
     Dosage: 75 MILLIGRAM/SQ. METER (130 MG TOT.)
     Route: 065
     Dates: start: 20101201
  3. DOCETAXEL [Suspect]
     Active Substance: DOCETAXEL
     Indication: Metastatic neoplasm
     Dosage: 75 MILLIGRAM/SQ. METER (130 MG TOT.)
     Route: 065
     Dates: start: 20101201
  4. IRINOTECAN [Suspect]
     Active Substance: IRINOTECAN
     Indication: Metastatic neoplasm
     Dosage: 180 MILLIGRAM/SQ. METER, (300 MG TOT.)
     Route: 065
     Dates: start: 20091216, end: 20100303
  5. OXALIPLATIN [Suspect]
     Active Substance: OXALIPLATIN
     Indication: Metastatic neoplasm
     Dosage: 75 MILLIGRAM/SQ. METER, (145 MG TOT.)
     Route: 065
     Dates: start: 20091216, end: 20100303
  6. SUNITINIB [Suspect]
     Active Substance: SUNITINIB
     Indication: Metastatic neoplasm
     Dosage: 25 MILLIGRAM
     Route: 065
     Dates: start: 20110223, end: 201105

REACTIONS (5)
  - Death [Fatal]
  - Disease progression [Unknown]
  - Intermenstrual bleeding [Unknown]
  - Neutropenia [Unknown]
  - Nausea [Unknown]
